FAERS Safety Report 5108753-4 (Version None)
Quarter: 2006Q3

REPORT INFORMATION
  Report Type: 
  Country: None (occurrence: None)
  Receive Date: 20060920
  Receipt Date: 20060411
  Transmission Date: 20061208
  Serious: Yes (Other)
  Sender: FDA-Public Use
  Company Number: PHBS2006JP05465

PATIENT
  Age: 73 Year
  Sex: Male
  Weight: 85 kg

DRUGS (5)
  1. LAMISIL [Suspect]
     Indication: NAIL TINEA
     Dosage: 125 MG, QD
     Route: 048
     Dates: start: 20060104, end: 20060410
  2. HOKUNALIN [Concomitant]
     Indication: EMPHYSEMA
     Dosage: 1 DF, QD
     Route: 061
     Dates: start: 20060101
  3. ADALAT [Concomitant]
     Indication: HYPERTENSION
     Dosage: 20 MG/D
     Route: 048
     Dates: start: 19900101
  4. ASPIRIN [Concomitant]
     Indication: ANGINA PECTORIS
     Dosage: 100 MG/DAY
     Route: 048
     Dates: start: 19900101
  5. URSO [Concomitant]
     Indication: LIVER DISORDER
     Dosage: 300 MG/D
     Route: 048
     Dates: start: 20050516, end: 20051220

REACTIONS (4)
  - BLOOD CREATINE PHOSPHOKINASE INCREASED [None]
  - MOBILITY DECREASED [None]
  - MYALGIA [None]
  - RHABDOMYOLYSIS [None]
